FAERS Safety Report 20412964 (Version 4)
Quarter: 2022Q2

REPORT INFORMATION
  Report Type: Report from Study
  Country: CO (occurrence: CO)
  Receive Date: 20220201
  Receipt Date: 20220525
  Transmission Date: 20220720
  Serious: Yes (Hospitalization)
  Sender: FDA-Public Use
  Company Number: CO-NOVARTISPH-NVSC2022CO021128

PATIENT
  Age: 40 Year
  Sex: Male
  Weight: 80 kg

DRUGS (3)
  1. ELTROMBOPAG OLAMINE [Suspect]
     Active Substance: ELTROMBOPAG OLAMINE
     Indication: Immune thrombocytopenia
     Dosage: UNK
     Route: 048
     Dates: start: 202111
  2. ELTROMBOPAG OLAMINE [Suspect]
     Active Substance: ELTROMBOPAG OLAMINE
     Dosage: 50 MG, Q24H (STARTED 20 DAYS AGO)
     Route: 048
  3. LEVOTHYROXINE [Concomitant]
     Active Substance: LEVOTHYROXINE
     Indication: Blood thyroid stimulating hormone abnormal
     Dosage: 50 MG, Q24H
     Route: 048

REACTIONS (11)
  - Illness [Unknown]
  - Condition aggravated [Unknown]
  - Platelet count decreased [Unknown]
  - Pyrexia [Unknown]
  - Feeling hot [Unknown]
  - Headache [Unknown]
  - Pain [Unknown]
  - Irritability [Unknown]
  - Feeling abnormal [Unknown]
  - Treatment failure [Unknown]
  - Product supply issue [Unknown]

NARRATIVE: CASE EVENT DATE: 20211101
